FAERS Safety Report 25945985 (Version 3)
Quarter: 2025Q4

REPORT INFORMATION
  Report Type: Report from Study
  Country: EU (occurrence: EU)
  Receive Date: 20251021
  Receipt Date: 20251207
  Transmission Date: 20260118
  Serious: Yes (Hospitalization)
  Sender: ABBVIE
  Company Number: EU-ABBVIE-6429892

PATIENT
  Age: 68 Year
  Sex: Female

DRUGS (17)
  1. FOSCARBIDOPA\FOSLEVODOPA [Suspect]
     Active Substance: FOSCARBIDOPA\FOSLEVODOPA
     Indication: Parkinson^s disease
     Route: 058
     Dates: start: 20250819, end: 20250820
  2. FOSCARBIDOPA\FOSLEVODOPA [Suspect]
     Active Substance: FOSCARBIDOPA\FOSLEVODOPA
     Dosage: CR:0,17ML/H CRH:0.21ML/H CRN:0,15ML/H ED:0,10ML?LAST ADMIN DATE: AUG 2025
     Route: 058
     Dates: start: 20250820
  3. FOSCARBIDOPA\FOSLEVODOPA [Suspect]
     Active Substance: FOSCARBIDOPA\FOSLEVODOPA
     Dosage: CRL: 0.15 ML/H, CR: 0.17 ML/H, CRH: 0.21 ML/H, ED: 0.10 ML?FIRST AND LAST ADMIN DATE- AUG 2025
     Route: 058
  4. FOSCARBIDOPA\FOSLEVODOPA [Suspect]
     Active Substance: FOSCARBIDOPA\FOSLEVODOPA
     Dosage: KRN: 0.15 ML/H, KR: 0.17 ML/H, KRH: 0.21 ML/H, ED: 0.10 ML FIRST ADMIN DATE- AUG 2025?LAST ADMIN ...
     Route: 058
  5. FOSCARBIDOPA\FOSLEVODOPA [Suspect]
     Active Substance: FOSCARBIDOPA\FOSLEVODOPA
     Dosage: CRN: 0.23 ML/H, CR: 0.24 ML/H, CRH: 0.26 ML/H, ED: 0.10 ML?FIRST AND LAST ADMIN DATE- 2025
     Route: 058
  6. FOSCARBIDOPA\FOSLEVODOPA [Suspect]
     Active Substance: FOSCARBIDOPA\FOSLEVODOPA
     Dosage: CRN: 0.23 ML/H, CR: 0.24 ML/H, CRH: 0.26 ML/H, ED: 0.20 ML?FIRST AND LAST ADMIN DATE- 2025
     Route: 058
  7. FOSCARBIDOPA\FOSLEVODOPA [Suspect]
     Active Substance: FOSCARBIDOPA\FOSLEVODOPA
     Dosage: STORED RUN RATES: CRN: 0.24 ML/H, CR: 0.26 ML/H, CRH: 0.26 ML/H, ED: 0.20 ML?FIRST AND LAST ADMIN...
     Route: 058
  8. FOSCARBIDOPA\FOSLEVODOPA [Suspect]
     Active Substance: FOSCARBIDOPA\FOSLEVODOPA
     Dosage: ADJUSTED RUN RATES: CRN: 0.23 ML/H, CR: 0.26 ML/H, CRH: 0.26 ML/H, ED: 0.20 ML?FIRST ADMIN DATE -...
     Route: 058
  9. OXYCODONE [Concomitant]
     Active Substance: OXYCODONE
     Indication: Product used for unknown indication
  10. EFEROX [Concomitant]
     Active Substance: LEVOTHYROXINE SODIUM
     Indication: Product used for unknown indication
  11. PANTOPRAZOLE [Concomitant]
     Active Substance: PANTOPRAZOLE
     Indication: Product used for unknown indication
  12. BUPROPION [Concomitant]
     Active Substance: BUPROPION
     Indication: Product used for unknown indication
  13. PREGABALIN [Concomitant]
     Active Substance: PREGABALIN
     Indication: Product used for unknown indication
  14. ONGENTYS [Concomitant]
     Active Substance: OPICAPONE
     Indication: Parkinson^s disease
  15. AMLODIPINE [Concomitant]
     Active Substance: AMLODIPINE BESYLATE
     Indication: Product used for unknown indication
  16. RAMIPRIL [Concomitant]
     Active Substance: RAMIPRIL
     Indication: Product used for unknown indication
  17. ATORVASTATIN [Concomitant]
     Active Substance: ATORVASTATIN
     Indication: Product used for unknown indication

REACTIONS (7)
  - Blood pressure fluctuation [Not Recovered/Not Resolved]
  - Hyperkinesia [Recovering/Resolving]
  - On and off phenomenon [Not Recovered/Not Resolved]
  - Dyskinesia [Not Recovered/Not Resolved]
  - Movement disorder [Recovering/Resolving]
  - Hypokinesia [Recovering/Resolving]
  - Bradykinesia [Recovering/Resolving]

NARRATIVE: CASE EVENT DATE: 20250101
